FAERS Safety Report 5464037-6 (Version None)
Quarter: 2007Q3

REPORT INFORMATION
  Report Type: 
  Country: None (occurrence: None)
  Receive Date: 20070921
  Receipt Date: 20070918
  Transmission Date: 20080115
  Serious: Yes (Other)
  Sender: FDA-Public Use
  Company Number: US-BAYER-200713251BWH

PATIENT
  Age: 56 Year
  Sex: Female

DRUGS (3)
  1. NIFEDIPINE [Suspect]
     Indication: DRUG USE FOR UNKNOWN INDICATION
  2. LABETALOL HCL [Concomitant]
  3. CLONIDINE [Concomitant]

REACTIONS (2)
  - BLOOD PRESSURE INCREASED [None]
  - INTRA-UTERINE DEATH [None]
